FAERS Safety Report 8263590 (Version 3)
Quarter: 2013Q3

REPORT INFORMATION
  Report Type: Spontaneous
  Country: FR (occurrence: FR)
  Receive Date: 20111127
  Receipt Date: 20130920
  Transmission Date: 20140515
  Serious: Yes (Hospitalization)
  Sender: FDA-Public Use
  Company Number: FR-MILLENNIUM PHARMACEUTICALS, INC.-2011-05835

PATIENT
  Sex: 0

DRUGS (12)
  1. VELCADE [Suspect]
     Indication: PLASMA CELL MYELOMA
     Dosage: 2.6 MG, UNK
     Route: 042
     Dates: start: 20110808, end: 20110819
  2. PREDNISONE [Suspect]
     Indication: PLASMA CELL MYELOMA
     Dosage: 120 MG, UNK
     Dates: start: 20110808, end: 20110819
  3. MELPHALAN [Suspect]
     Indication: PLASMA CELL MYELOMA
     Dosage: 18 MG, UNK
     Route: 042
     Dates: start: 20110808, end: 20110819
  4. MACROGOL [Concomitant]
  5. GLUCOPHAGE                         /00082701/ [Concomitant]
     Dosage: UNK
     Route: 048
     Dates: start: 20110820, end: 20110824
  6. GLUCOPHAGE                         /00082701/ [Concomitant]
     Dosage: UNK
     Dates: start: 20110609, end: 20110909
  7. RIVOTRIL [Concomitant]
     Dosage: 2.5 MG, UNK
     Route: 048
     Dates: start: 20110820, end: 20110824
  8. RIVOTRIL [Concomitant]
     Dosage: UNK
     Dates: start: 20110609, end: 20110909
  9. ACTRAPID                           /00030501/ [Concomitant]
     Dosage: UNK
     Route: 058
     Dates: end: 20110826
  10. LASILIX                            /00032601/ [Concomitant]
     Route: 042
  11. EXTENCILLINE                       /00000904/ [Concomitant]
     Dosage: UNK
     Route: 030
     Dates: start: 20110609, end: 20110709
  12. PARACETAMOL [Concomitant]
     Indication: SPINAL PAIN

REACTIONS (3)
  - Back pain [Recovered/Resolved]
  - Infection [Recovered/Resolved]
  - Chondrocalcinosis [Unknown]
